FAERS Safety Report 6557937-7 (Version None)
Quarter: 2010Q1

REPORT INFORMATION
  Report Type: 
  Country: None (occurrence: None)
  Receive Date: 20100127
  Receipt Date: 20100127
  Transmission Date: 20100710
  Serious: Yes (Hospitalization)
  Sender: FDA-Public Use
  Company Number: None

PATIENT
  Sex: Male
  Weight: 59.5 kg

DRUGS (5)
  1. REVLIMID [Suspect]
     Indication: PROSTATE CANCER
     Dosage: 15 MG QD X 21 DAYS PO
     Route: 048
     Dates: end: 20091223
  2. AMLODIPINE [Concomitant]
  3. SERTRALINE HCL [Concomitant]
  4. ATENOLOL [Concomitant]
  5. LIPITOR [Concomitant]

REACTIONS (1)
  - PANCYTOPENIA [None]
